FAERS Safety Report 10913599 (Version 1)
Quarter: 2015Q1

REPORT INFORMATION
  Report Type: Spontaneous
  Country: IR (occurrence: None)
  Receive Date: 20150311
  Receipt Date: 20150311
  Transmission Date: 20150721
  Serious: Yes (Life-Threatening, Hospitalization, Disabling)
  Sender: FDA-Public Use
  Company Number: None

PATIENT
  Age: 26 Year
  Sex: Female
  Weight: 50 kg

DRUGS (5)
  1. XANAX [Suspect]
     Active Substance: ALPRAZOLAM
     Indication: HEADACHE
     Dosage: 1/2 PILL AT BEDTIME
     Route: 048
     Dates: start: 20140310, end: 20140314
  2. CITALOPRAM [Suspect]
     Active Substance: CITALOPRAM HYDROBROMIDE
     Indication: HEADACHE
     Dosage: 1/2 PILL ONCE DAILY
     Route: 048
     Dates: start: 20140310, end: 20140314
  3. CITALOPRAM [Suspect]
     Active Substance: CITALOPRAM HYDROBROMIDE
     Indication: DEPRESSION
     Dosage: 1/2 PILL ONCE DAILY
     Route: 048
     Dates: start: 20140310, end: 20140314
  4. CLONAZEPAM. [Concomitant]
     Active Substance: CLONAZEPAM
  5. XANAX [Suspect]
     Active Substance: ALPRAZOLAM
     Indication: DEPRESSION
     Dosage: 1/2 PILL AT BEDTIME
     Route: 048
     Dates: start: 20140310, end: 20140314

REACTIONS (20)
  - Heart rate increased [None]
  - Confusional state [None]
  - Loss of consciousness [None]
  - Paraesthesia [None]
  - Vision blurred [None]
  - Mental disorder [None]
  - Fear [None]
  - Visual impairment [None]
  - Derealisation [None]
  - Suicidal ideation [None]
  - Mental impairment [None]
  - Psychosomatic disease [None]
  - Hypoaesthesia [None]
  - Periorbital oedema [None]
  - Feeling cold [None]
  - Depression [None]
  - Discomfort [None]
  - Cerebral disorder [None]
  - Tension [None]
  - Feeling abnormal [None]

NARRATIVE: CASE EVENT DATE: 20140310
